FAERS Safety Report 10223120 (Version 2)
Quarter: 2014Q3

REPORT INFORMATION
  Report Type: Spontaneous
  Country: US (occurrence: US)
  Receive Date: 20140607
  Receipt Date: 20140706
  Transmission Date: 20150326
  Serious: Yes (Other)
  Sender: FDA-Public Use
  Company Number: PHEH2014US011416

PATIENT
  Age: 10 Year
  Sex: Female
  Weight: 33 kg

DRUGS (5)
  1. ONFI [Suspect]
     Active Substance: CLOBAZAM
     Indication: CONVULSION
     Dosage: UNK UKN, UNK
     Dates: start: 201404
  2. TRILEPTAL [Suspect]
     Active Substance: OXCARBAZEPINE
     Dosage: DOSE DECREASED
     Dates: start: 201402
  3. TRILEPTAL [Suspect]
     Active Substance: OXCARBAZEPINE
     Indication: CONVULSION
     Dosage: UNK UKN, UNK
  4. LAMOTRIGINE. [Suspect]
     Active Substance: LAMOTRIGINE
     Indication: GENERALISED TONIC-CLONIC SEIZURE
     Dosage: 225 MG (ONE TABLET 25 MG IN THE MORNING AND ONE TABLET 100 MG IN THE EVENING), DAILY
     Route: 048
     Dates: start: 201312
  5. VIMPAT [Suspect]
     Active Substance: LACOSAMIDE
     Indication: CONVULSION
     Dosage: UNK UKN, UNK
     Dates: start: 201405

REACTIONS (7)
  - Fatigue [Not Recovered/Not Resolved]
  - Partial seizures [Not Recovered/Not Resolved]
  - Mood altered [Not Recovered/Not Resolved]
  - Cognitive disorder [Not Recovered/Not Resolved]
  - Vision blurred [Not Recovered/Not Resolved]
  - Generalised tonic-clonic seizure [Not Recovered/Not Resolved]
  - Convulsion [Not Recovered/Not Resolved]

NARRATIVE: CASE EVENT DATE: 201402
